FAERS Safety Report 14244825 (Version 3)
Quarter: 2018Q1

REPORT INFORMATION
  Report Type: Report from Study
  Country: US (occurrence: US)
  Receive Date: 20171201
  Receipt Date: 20180102
  Transmission Date: 20180508
  Serious: Yes (Death, Hospitalization, Other)
  Sender: FDA-Public Use
  Company Number: US-ACTELION-A-US2016-141126

PATIENT
  Age: 71 Year
  Sex: Female
  Weight: 60.77 kg

DRUGS (5)
  1. VELETRI [Suspect]
     Active Substance: EPOPROSTENOL
     Dosage: 24.5 NG/KG, PER MIN
     Route: 042
     Dates: start: 20151121
  2. ADCIRCA [Concomitant]
     Active Substance: TADALAFIL
  3. LETAIRIS [Concomitant]
     Active Substance: AMBRISENTAN
  4. VELETRI [Suspect]
     Active Substance: EPOPROSTENOL
     Indication: PULMONARY HYPERTENSION
     Dosage: 26 NG/KG, PER MIN
     Route: 042
  5. NIFEDIPINE. [Concomitant]
     Active Substance: NIFEDIPINE

REACTIONS (13)
  - Abdominal pain [Unknown]
  - Ascites [Fatal]
  - Transfusion [Unknown]
  - Asthenia [Unknown]
  - Right ventricular failure [Fatal]
  - Scleroderma [Unknown]
  - Dyspnoea [Unknown]
  - Oedema peripheral [Fatal]
  - Lower gastrointestinal haemorrhage [Unknown]
  - Cardiac failure congestive [Unknown]
  - Pneumonia [Unknown]
  - Haemoglobin decreased [Unknown]
  - Intestinal haemorrhage [Unknown]
